FAERS Safety Report 16153027 (Version 1)
Quarter: 2019Q2

REPORT INFORMATION
  Report Type: Spontaneous
  Country: US (occurrence: US)
  Receive Date: 20190403
  Receipt Date: 20190403
  Transmission Date: 20190711
  Serious: No
  Sender: FDA-Public Use
  Company Number: US-PRINSTON PHARMACEUTICAL INC.-2018PRN01294

PATIENT
  Sex: Female
  Weight: 86.17 kg

DRUGS (5)
  1. VITAMIN D NOS [Concomitant]
     Active Substance: VITAMIN D NOS
  2. VITAMIN B12 [Concomitant]
     Active Substance: CYANOCOBALAMIN
  3. VALSARTAN. [Suspect]
     Active Substance: VALSARTAN
     Dosage: 1 TABLETS, 1X/DAY
     Route: 048
     Dates: start: 201807
  4. CALCIUM [Concomitant]
     Active Substance: CALCIUM
  5. VALSARTAN. [Suspect]
     Active Substance: VALSARTAN
     Indication: HYPERTENSION
     Dosage: 1 TABLETS, 1X/DAY
     Route: 048
     Dates: start: 201807

REACTIONS (3)
  - Vomiting [Recovered/Resolved]
  - Recalled product administered [Recovered/Resolved]
  - Nausea [Recovered/Resolved]

NARRATIVE: CASE EVENT DATE: 2018
